FAERS Safety Report 10879657 (Version 1)
Quarter: 2015Q1

REPORT INFORMATION
  Report Type: Spontaneous
  Country: US (occurrence: None)
  Receive Date: 20150224
  Receipt Date: 20150224
  Transmission Date: 20150721
  Serious: Yes (Other)
  Sender: FDA-Public Use
  Company Number: None

PATIENT
  Age: 66 Year
  Sex: Male

DRUGS (2)
  1. REVLIMID [Suspect]
     Active Substance: LENALIDOMIDE
     Indication: PLASMA CELL MYELOMA
     Dosage: 15MG  DAILY X14D/21D ORL
     Route: 048
     Dates: start: 201403, end: 201502
  2. LISIOPRIL-HYDROCHLOROTHIAZIDE PRINZIDE/ZESTORETIC [Concomitant]

REACTIONS (7)
  - Cough [None]
  - Pulmonary embolism [None]
  - Body temperature increased [None]
  - Chest pain [None]
  - Chills [None]
  - Pneumonia [None]
  - Dyspnoea [None]

NARRATIVE: CASE EVENT DATE: 20150217
